FAERS Safety Report 12354847 (Version 1)
Quarter: 2016Q2

REPORT INFORMATION
  Report Type: Spontaneous
  Country: US (occurrence: None)
  Receive Date: 20160510
  Receipt Date: 20160510
  Transmission Date: 20160815
  Serious: Yes (Hospitalization)
  Sender: FDA-Public Use
  Company Number: None

PATIENT
  Age: 53 Year
  Sex: Male
  Weight: 117.2 kg

DRUGS (1)
  1. NIFEDIPINE. [Suspect]
     Active Substance: NIFEDIPINE
     Indication: HYPERTENSION
     Route: 048
     Dates: start: 20160422, end: 20160509

REACTIONS (4)
  - Tachycardia [None]
  - Angina pectoris [None]
  - Coronary artery occlusion [None]
  - Dyspnoea [None]

NARRATIVE: CASE EVENT DATE: 20160422
